FAERS Safety Report 6079878-4 (Version None)
Quarter: 2009Q1

REPORT INFORMATION
  Report Type: 
  Country: None (occurrence: None)
  Receive Date: 20090217
  Receipt Date: 20090209
  Transmission Date: 20090719
  Serious: Yes (Hospitalization)
  Sender: FDA-Public Use
  Company Number: TW-KINGPHARMUSA00001-K200900128

PATIENT
  Age: 23 Year
  Sex: Male

DRUGS (2)
  1. CYTOMEL [Suspect]
     Indication: WEIGHT DECREASED
     Dosage: 64 MCG, BID
  2. PROPRANOLOL [Suspect]
     Indication: WEIGHT DECREASED
     Dosage: 40 MG, BID

REACTIONS (14)
  - ABASIA [None]
  - ATRIOVENTRICULAR BLOCK FIRST DEGREE [None]
  - HYPERHIDROSIS [None]
  - HYPERKALAEMIA [None]
  - HYPERTHYROIDISM [None]
  - HYPOKALAEMIA [None]
  - HYPOPHOSPHATAEMIA [None]
  - HYPOREFLEXIA [None]
  - MALAISE [None]
  - MUSCULAR WEAKNESS [None]
  - PARALYSIS FLACCID [None]
  - SYSTOLIC HYPERTENSION [None]
  - TACHYCARDIA [None]
  - THYROTOXIC PERIODIC PARALYSIS [None]
